FAERS Safety Report 5396579-6 (Version None)
Quarter: 2007Q3

REPORT INFORMATION
  Report Type: 
  Country: None (occurrence: None)
  Receive Date: 20070718
  Receipt Date: 20070307
  Transmission Date: 20080115
  Serious: Yes (Hospitalization, Other)
  Sender: FDA-Public Use
  Company Number: 2006141568

PATIENT
  Age: 65 Year
  Sex: Male
  Weight: 136.5 kg

DRUGS (3)
  1. CELEBREX [Suspect]
     Indication: OSTEOARTHRITIS
     Dosage: 200 MG (200 MG, 1 IN1 D)
     Dates: start: 20000806
  2. CELEBREX [Suspect]
     Indication: PAIN
     Dosage: 200 MG (200 MG, 1 IN1 D)
     Dates: start: 20000806
  3. CELEBREX [Suspect]
     Indication: SPONDYLITIS
     Dosage: 200 MG (200 MG, 1 IN1 D)
     Dates: start: 20000806

REACTIONS (1)
  - MYOCARDIAL INFARCTION [None]
